FAERS Safety Report 7785119-X (Version None)
Quarter: 2011Q3

REPORT INFORMATION
  Report Type: 
  Country: None (occurrence: None)
  Receive Date: 20110929
  Receipt Date: 20110919
  Transmission Date: 20111222
  Serious: No
  Sender: FDA-Public Use
  Company Number: US-BIOGENIDEC-2011BI036005

PATIENT
  Sex: Male

DRUGS (1)
  1. TYSABRI [Suspect]
     Indication: MULTIPLE SCLEROSIS
     Route: 042
     Dates: start: 20100216

REACTIONS (7)
  - ANGER [None]
  - DYSGRAPHIA [None]
  - SPEECH DISORDER [None]
  - MULTIPLE SCLEROSIS RELAPSE [None]
  - MENTAL IMPAIRMENT [None]
  - MEMORY IMPAIRMENT [None]
  - COGNITIVE DISORDER [None]
